FAERS Safety Report 7609522-3 (Version None)
Quarter: 2011Q3

REPORT INFORMATION
  Report Type: 
  Country: None (occurrence: None)
  Receive Date: 20110714
  Receipt Date: 20110701
  Transmission Date: 20111222
  Serious: Yes (Other)
  Sender: FDA-Public Use
  Company Number: US-UCBSA-036669

PATIENT
  Sex: Male
  Weight: 93 kg

DRUGS (17)
  1. MULTI-VITAMIN [Concomitant]
     Dosage: ONCE DAILY
  2. VITAMIN B-12 [Concomitant]
  3. CIMZIA [Suspect]
     Route: 058
  4. FOSAMAX PLUS D [Concomitant]
     Dosage: ONCE DAILY
  5. SINGULAIR [Concomitant]
  6. CALCIUM + VIT D [Concomitant]
     Dosage: CALCIUM 600 MG + VITAMIN D 400 IU TWO TAB ONCE DAILY
  7. CRESTOR [Concomitant]
  8. UROXATRAL [Concomitant]
  9. PREDNISONE [Concomitant]
     Dosage: EVERY MORNING
  10. PROVENTIL [Concomitant]
     Dosage: HFA 2 PUFF EVERY FOUR HOURS AS NEEDED
  11. VITAMIN D [Concomitant]
     Dosage: 1000 U ONCE DAILY
  12. METHOTREXATE [Concomitant]
     Dosage: 2.5 MG, 4-3-3 EVERY WEEK
  13. SYMBICORT [Concomitant]
     Dosage: 160/4.5 2 PUFF TWICE A DAY AS NEEDED
  14. CIPROFLOXACIN HCL [Concomitant]
  15. QUESTRAN [Concomitant]
     Dosage: 1 PACKET ONCE DAILY
  16. PENTASA [Concomitant]
     Dosage: 5-6-5
  17. PRILOSEC [Concomitant]

REACTIONS (1)
  - HERPES ZOSTER [None]
